FAERS Safety Report 21129282 (Version 3)
Quarter: 2023Q1

REPORT INFORMATION
  Report Type: Report from Study
  Country: None (occurrence: CN)
  Receive Date: 20220725
  Receipt Date: 20230111
  Transmission Date: 20230417
  Serious: Yes (Hospitalization)
  Sender: FDA-Public Use
  Company Number: CN-Jiangsu Hengrui Medicine Co., Ltd.-2131222

PATIENT
  Age: 37 Year
  Sex: Female
  Weight: 66 kg

DRUGS (5)
  1. CYCLOPHOSPHAMIDE [Suspect]
     Active Substance: CYCLOPHOSPHAMIDE
     Indication: Invasive breast carcinoma
     Route: 041
     Dates: start: 20220622, end: 20220622
  2. CAMRELIZUMAB [Suspect]
     Active Substance: CAMRELIZUMAB
     Route: 041
     Dates: start: 20220224
  3. PACLITAXEL [Suspect]
     Active Substance: PACLITAXEL
     Route: 041
     Dates: start: 20220224, end: 20220608
  4. CARBOPLATIN [Suspect]
     Active Substance: CARBOPLATIN
     Route: 041
     Dates: start: 20220224, end: 20220608
  5. EPIRUBICIN HYDROCHLORIDE [Suspect]
     Active Substance: EPIRUBICIN HYDROCHLORIDE
     Route: 041
     Dates: start: 20220622

REACTIONS (1)
  - Visual field defect [Recovered/Resolved]

NARRATIVE: CASE EVENT DATE: 20220712
